FAERS Safety Report 4357021-7 (Version None)
Quarter: 2004Q2

REPORT INFORMATION
  Report Type: 
  Country: None (occurrence: None)
  Receive Date: 20040510
  Receipt Date: 20040427
  Transmission Date: 20050107
  Serious: Yes (Hospitalization)
  Sender: FDA-Public Use
  Company Number: 04P-087-0258512-00

PATIENT
  Age: 52 Year
  Sex: Female

DRUGS (2)
  1. ISOPTIN [Suspect]
     Dosage: 240 MG, 1 IN 1 D, PER ORAL
     Route: 048
  2. ISOPTIN [Suspect]
     Indication: ATRIAL FLUTTER
     Dosage: 10 MG, 1 IN 1 D, INTRAVENOUS
     Route: 042

REACTIONS (6)
  - ATRIAL FIBRILLATION [None]
  - ATRIAL FLUTTER [None]
  - BRADYCARDIA [None]
  - CARDIAC ARREST [None]
  - PACING THRESHOLD INCREASED [None]
  - SINUS ARREST [None]
